FAERS Safety Report 16360667 (Version 2)
Quarter: 2019Q2

REPORT INFORMATION
  Report Type: Spontaneous
  Country: DK (occurrence: DK)
  Receive Date: 20190528
  Receipt Date: 20190611
  Transmission Date: 20190711
  Serious: Yes (Hospitalization, Other)
  Sender: FDA-Public Use
  Company Number: DK-AUROBINDO-AUR-APL-2019-029252

PATIENT

DRUGS (1)
  1. OLANZAPINE. [Suspect]
     Active Substance: OLANZAPINE
     Indication: SCHIZOPHRENIA
     Dosage: UNK, DOSIS: VARIERENDE STYRKE:  VARIERENDE
     Route: 048
     Dates: start: 2009

REACTIONS (7)
  - Cardiac fibrillation [Recovered/Resolved]
  - Cardiac failure [Recovered/Resolved]
  - Chest pain [Recovered/Resolved]
  - Coronary artery stenosis [Recovered/Resolved]
  - Coronary arterial stent insertion [Recovered/Resolved]
  - Increased appetite [Unknown]
  - Heart rate increased [Recovered/Resolved]

NARRATIVE: CASE EVENT DATE: 201807
